FAERS Safety Report 24041870 (Version 1)
Quarter: 2024Q3

REPORT INFORMATION
  Report Type: Spontaneous
  Country: US (occurrence: None)
  Receive Date: 20240701
  Receipt Date: 20240701
  Transmission Date: 20241017
  Serious: Yes (unspecified)
  Sender: Public
  Company Number: None

PATIENT
  Age: 59 Year
  Sex: Male
  Weight: 94.5 kg

DRUGS (1)
  1. XCOPRI [Suspect]
     Active Substance: CENOBAMATE

REACTIONS (5)
  - Constipation [None]
  - Abdominal pain [None]
  - Nausea [None]
  - Abdominal distension [None]
  - Gastrointestinal sounds abnormal [None]

NARRATIVE: CASE EVENT DATE: 20240701
